FAERS Safety Report 4507863-X (Version None)
Quarter: 2004Q4

REPORT INFORMATION
  Report Type: 
  Country: None (occurrence: None)
  Receive Date: 20041123
  Receipt Date: 20040329
  Transmission Date: 20050328
  Serious: Yes (Other)
  Sender: FDA-Public Use
  Company Number: PHNU2004DE01406

PATIENT
  Age: 44 Year
  Sex: Female

DRUGS (3)
  1. LAMISIL [Suspect]
     Indication: NAIL TINEA
     Dosage: 250 MG, BID
     Route: 048
     Dates: start: 20031204, end: 20031217
  2. LAMISIL [Suspect]
     Dosage: 125 MG, QD
     Route: 048
     Dates: start: 20031218, end: 20040308
  3. CORTICOSTEROIDS, COMB WITH ANTIBIOTICS [Concomitant]
     Indication: EXANTHEM
     Route: 061

REACTIONS (17)
  - ANTINUCLEAR ANTIBODY POSITIVE [None]
  - ARTHROPATHY [None]
  - BIOPSY SKIN [None]
  - CUTANEOUS LUPUS ERYTHEMATOSUS [None]
  - ECZEMA [None]
  - ECZEMA IMPETIGINOUS [None]
  - ECZEMA INFECTED [None]
  - ERYTHEMA [None]
  - EXANTHEM [None]
  - PHOTOSENSITIVITY REACTION [None]
  - PITYRIASIS ROSEA [None]
  - PRURITUS [None]
  - RASH [None]
  - RASH SCALY [None]
  - SKIN REACTION [None]
  - SYSTEMIC LUPUS ERYTHEMATOSUS [None]
  - TINEA VERSICOLOUR [None]
